FAERS Safety Report 20151110 (Version 2)
Quarter: 2022Q1

REPORT INFORMATION
  Report Type: Spontaneous
  Country: US (occurrence: US)
  Receive Date: 20211206
  Receipt Date: 20220114
  Transmission Date: 20220423
  Serious: Yes (Hospitalization, Other)
  Sender: FDA-Public Use
  Company Number: US-BIOVITRUM-2021US11467

PATIENT
  Sex: Male

DRUGS (1)
  1. SYNAGIS [Suspect]
     Active Substance: PALIVIZUMAB
     Indication: Premature baby
     Route: 030
     Dates: start: 202110

REACTIONS (7)
  - Respiratory syncytial virus infection [Unknown]
  - Hypokalaemia [Unknown]
  - Dehydration [Unknown]
  - Acute kidney injury [Unknown]
  - Vomiting [Unknown]
  - Diarrhoea [Unknown]
  - Respiratory syncytial virus bronchiolitis [Unknown]
